FAERS Safety Report 15708920 (Version 3)
Quarter: 2020Q1

REPORT INFORMATION
  Report Type: Spontaneous
  Country: AT (occurrence: AT)
  Receive Date: 20181211
  Receipt Date: 20200326
  Transmission Date: 20200409
  Serious: Yes (Hospitalization)
  Sender: FDA-Public Use
  Company Number: PHHY2018AT169273

PATIENT
  Age: 78 Year
  Sex: Female
  Weight: 48 kg

DRUGS (28)
  1. TEMESTA [Concomitant]
     Indication: PRODUCT USED FOR UNKNOWN INDICATION
     Dosage: UNK
     Route: 065
  2. CLAVERSAL [Concomitant]
     Active Substance: MESALAMINE
     Indication: PRODUCT USED FOR UNKNOWN INDICATION
     Dosage: UNK
     Route: 065
  3. CAPHOSOL [Concomitant]
     Active Substance: CALCIUM CHLORIDE\SODIUM CHLORIDE\SODIUM PHOSPHATE, DIBASIC, ANHYDROUS\SODIUM PHOSPHATE, MONOBASIC, ANHYDROUS
     Indication: MUCOSAL INFLAMMATION
     Dosage: UNK
     Route: 065
     Dates: start: 20180615, end: 20180921
  4. KYTRIL [Concomitant]
     Active Substance: GRANISETRON HYDROCHLORIDE
     Indication: PRODUCT USED FOR UNKNOWN INDICATION
     Dosage: UNK
     Route: 065
     Dates: start: 20180928, end: 20181019
  5. ENTEROBENE [Concomitant]
     Indication: DIARRHOEA
     Dosage: UNK
     Route: 065
     Dates: start: 20181012, end: 20181116
  6. CIPROXIN [Concomitant]
     Active Substance: CIPROFLOXACIN
     Indication: GASTROENTERITIS RADIATION
     Dosage: UNK
     Route: 065
  7. TRASTUZUMAB. [Suspect]
     Active Substance: TRASTUZUMAB
     Indication: HER-2 POSITIVE BREAST CANCER
     Dosage: 384 MG, TIW
     Route: 042
     Dates: start: 20180810, end: 20180810
  8. ABRAXANE [Suspect]
     Active Substance: PACLITAXEL
     Indication: BREAST CANCER
     Dosage: 142.11 MG, QW
     Route: 042
     Dates: start: 20180928
  9. CLAVERSAL [Concomitant]
     Active Substance: MESALAMINE
     Dosage: ONGOING = CHECKED
     Route: 065
  10. TRITTICO [Concomitant]
     Active Substance: TRAZODONE HYDROCHLORIDE
     Indication: PRODUCT USED FOR UNKNOWN INDICATION
     Dosage: UNK
     Route: 065
  11. CALCIDURAN [Concomitant]
     Active Substance: ASCORBIC ACID\CALCIUM PHOSPHATE\CHOLECALCIFEROL\CITRIC ACID MONOHYDRATE
     Indication: GASTROENTERITIS RADIATION
     Dosage: UNK
     Route: 065
     Dates: start: 20181117, end: 20181118
  12. PERTUZUMAB. [Suspect]
     Active Substance: PERTUZUMAB
     Indication: HER-2 POSITIVE BREAST CANCER
     Dosage: 840 MG, TIW
     Route: 042
     Dates: start: 20180810, end: 20180810
  13. ANTIFLAT [Concomitant]
     Indication: PRODUCT USED FOR UNKNOWN INDICATION
     Dosage: UNK
     Route: 065
     Dates: start: 20181126
  14. FEMARA [Suspect]
     Active Substance: LETROZOLE
     Indication: BREAST CANCER
     Dosage: 2.5 MG, QD
     Route: 048
     Dates: start: 20181029, end: 20190613
  15. ABRAXANE [Suspect]
     Active Substance: PACLITAXEL
     Dosage: 142.11 MG, QW
     Route: 042
     Dates: start: 20181005
  16. PERTUZUMAB. [Suspect]
     Active Substance: PERTUZUMAB
     Indication: BREAST CANCER
     Dosage: 840 MG, TIW
     Route: 042
     Dates: start: 20180831
  17. PARKEMED [Concomitant]
     Active Substance: MEFENAMIC ACID
     Dosage: UNK
     Route: 065
     Dates: start: 20180914
  18. PARKEMED [Concomitant]
     Active Substance: MEFENAMIC ACID
     Dosage: UNK
     Route: 065
     Dates: start: 20181019
  19. XGEVA [Concomitant]
     Active Substance: DENOSUMAB
     Indication: PRODUCT USED FOR UNKNOWN INDICATION
     Dosage: UNK
     Route: 065
     Dates: start: 20180817
  20. OLEOVIT [Concomitant]
     Indication: PRODUCT USED FOR UNKNOWN INDICATION
     Dosage: UNK
     Route: 065
  21. ZOFRAN [Concomitant]
     Active Substance: ONDANSETRON HYDROCHLORIDE
     Indication: NAUSEA
     Dosage: UNK
     Route: 065
     Dates: start: 20190907
  22. ABRAXANE [Suspect]
     Active Substance: PACLITAXEL
     Dosage: 142.11 MG, QW
     Route: 042
     Dates: start: 20181019
  23. PARKEMED [Concomitant]
     Active Substance: MEFENAMIC ACID
     Indication: ARTHRALGIA
     Dosage: UNK
     Route: 065
  24. TRITTICO [Concomitant]
     Active Substance: TRAZODONE HYDROCHLORIDE
     Route: 065
  25. TRASTUZUMAB. [Suspect]
     Active Substance: TRASTUZUMAB
     Dosage: 384 MG, TIW
     Route: 042
     Dates: start: 20181109
  26. PARKEMED [Concomitant]
     Active Substance: MEFENAMIC ACID
     Dosage: UNK
     Route: 065
     Dates: start: 20190615
  27. ENTEROBENE [Concomitant]
     Dosage: UNK
     Route: 065
     Dates: start: 20181127
  28. VITAMINS WITH MINERALS [Concomitant]
     Active Substance: MINERALS\VITAMINS
     Indication: PRODUCT USED FOR UNKNOWN INDICATION
     Route: 065
     Dates: start: 20180817, end: 20190615

REACTIONS (2)
  - Gastroenteritis radiation [Recovered/Resolved]
  - Abdominal pain upper [Not Recovered/Not Resolved]

NARRATIVE: CASE EVENT DATE: 20181109
